FAERS Safety Report 24223987 (Version 2)
Quarter: 2024Q3

REPORT INFORMATION
  Report Type: Spontaneous
  Country: PL (occurrence: PL)
  Receive Date: 20240819
  Receipt Date: 20240920
  Transmission Date: 20241016
  Serious: Yes (Other)
  Sender: BAXTER
  Company Number: PL-BAXTER-2024BAX022994

PATIENT
  Age: 35 Year
  Sex: Male

DRUGS (2)
  1. PROPOFOL [Suspect]
     Active Substance: PROPOFOL
     Indication: Sedative therapy
     Dosage: 0.01 G/ML, UNSPECIFIED FREQUENCY (REACHED UP TO 500 MG)
     Route: 042
     Dates: start: 20240808, end: 20240808
  2. PROPOFOL [Suspect]
     Active Substance: PROPOFOL
     Indication: Anaesthesia

REACTIONS (8)
  - Drug ineffective [Unknown]
  - Hypersensitivity [Recovered/Resolved]
  - Laryngospasm [Recovered/Resolved]
  - Salivary hypersecretion [Recovered/Resolved]
  - Stridor [Unknown]
  - Myoclonus [Recovered/Resolved]
  - Oxygen saturation decreased [Recovered/Resolved]
  - Sneezing [Recovered/Resolved]

NARRATIVE: CASE EVENT DATE: 20240808
